FAERS Safety Report 9653739 (Version 1)
Quarter: 2013Q4

REPORT INFORMATION
  Report Type: Spontaneous
  Country: US (occurrence: US)
  Receive Date: 20131029
  Receipt Date: 20131029
  Transmission Date: 20140711
  Serious: Yes (Other)
  Sender: FDA-Public Use
  Company Number: US-UCBSA-101523

PATIENT
  Sex: Female

DRUGS (7)
  1. VIMPAT [Suspect]
  2. KEPPRA [Suspect]
     Dosage: DAILY DOSE: 3000 MG
  3. DILANTIN [Suspect]
     Dosage: DAILY DOSE: 300 MG
  4. DILANTIN [Suspect]
     Dosage: DAILY DOSE: 3000 MG
  5. CYMBALTA [Concomitant]
     Dosage: 60 MG
  6. TEGRATOL [Concomitant]
  7. TOPAMAX [Concomitant]

REACTIONS (10)
  - Grand mal convulsion [Recovering/Resolving]
  - Petit mal epilepsy [Unknown]
  - Petit mal epilepsy [Unknown]
  - Renal disorder [Unknown]
  - Altered state of consciousness [Unknown]
  - Convulsion [Unknown]
  - Hypersensitivity [Unknown]
  - Fall [Unknown]
  - Pain [Unknown]
  - Drug ineffective [Unknown]
